FAERS Safety Report 9519125 (Version 1)
Quarter: 2013Q1

REPORT INFORMATION
  Report Type: Spontaneous
  Country: US (occurrence: None)
  Receive Date: 20130305
  Receipt Date: 20130305
  Transmission Date: 20140127
  Serious: Yes (Other)
  Sender: FDA-Public Use
  Company Number: 163-21880-12011075

PATIENT
  Age: 43 Year
  Sex: Male
  Weight: 92.99 kg

DRUGS (3)
  1. REVLIMID [Suspect]
     Indication: B-CELL LYMPHOMA
     Dosage: 20 MG, DAILY, PO
     Route: 048
     Dates: start: 20111215
  2. RITUXIMAB (RITUXIMBAB) (UNKNOWN) [Concomitant]
  3. RITUXAN (RITUXIMAB) (UNKNOWN) [Concomitant]

REACTIONS (2)
  - Neutrophil count decreased [None]
  - Full blood count decreased [None]
